FAERS Safety Report 10063007 (Version 1)
Quarter: 2014Q2

REPORT INFORMATION
  Report Type: Spontaneous
  Country: IT (occurrence: IT)
  Receive Date: 20140407
  Receipt Date: 20140407
  Transmission Date: 20141212
  Serious: Yes (Hospitalization)
  Sender: FDA-Public Use
  Company Number: IT-BRISTOL-MYERS SQUIBB COMPANY-20575098

PATIENT
  Age: 69 Year
  Sex: Female

DRUGS (8)
  1. COUMADIN TABS 5 MG [Suspect]
     Dosage: INTERRUPTED ON 03DEC2013 AND REINTRODUCED
     Route: 048
     Dates: start: 20131029
  2. EUTIROX [Concomitant]
     Dosage: TABS
     Route: 048
  3. LOSARTAN POTASSIUM [Concomitant]
     Dosage: LORTAAN 12.5MG TABS
     Route: 048
  4. LUVION [Concomitant]
     Dosage: TABS
     Route: 048
  5. LASIX [Concomitant]
     Dosage: TABS
     Route: 048
  6. VYTORIN [Concomitant]
     Dosage: TABS
  7. DILATREND [Concomitant]
     Dosage: DILATREND 6.25MG TABS
  8. ANTRA [Concomitant]
     Dosage: CAPS
     Route: 048

REACTIONS (5)
  - Dyspnoea [Recovering/Resolving]
  - Pallor [Recovering/Resolving]
  - Prothrombin time prolonged [Recovering/Resolving]
  - Toxicity to various agents [Recovering/Resolving]
  - Overdose [Unknown]
